FAERS Safety Report 4311608-6 (Version None)
Quarter: 2004Q1

REPORT INFORMATION
  Report Type: 
  Country: None (occurrence: None)
  Receive Date: 20040304
  Receipt Date: 20040225
  Transmission Date: 20041129
  Serious: Yes (Life-Threatening)
  Sender: FDA-Public Use
  Company Number: FR-ROCHE-359745

PATIENT
  Age: 1 Hour
  Sex: Male
  Weight: 1.8 kg

DRUGS (2)
  1. LOXEN [Suspect]
     Indication: PREGNANCY INDUCED HYPERTENSION
     Dates: start: 19980830, end: 19980830
  2. TRANDATE [Suspect]
     Indication: PREGNANCY INDUCED HYPERTENSION
     Dates: end: 19980830

REACTIONS (6)
  - CAESAREAN SECTION [None]
  - CARDIAC ARREST NEONATAL [None]
  - HYPOVENTILATION [None]
  - HYPOVENTILATION NEONATAL [None]
  - MATERNAL DRUGS AFFECTING FOETUS [None]
  - PREMATURE BABY [None]
